FAERS Safety Report 24309723 (Version 1)
Quarter: 2024Q3

REPORT INFORMATION
  Report Type: Spontaneous
  Country: US (occurrence: US)
  Receive Date: 20240912
  Receipt Date: 20240912
  Transmission Date: 20241016
  Serious: No
  Sender: SANDOZ
  Company Number: US-SANDOZ-SDZ2024US074085

PATIENT
  Sex: Male

DRUGS (8)
  1. OMNITROPE [Suspect]
     Active Substance: SOMATROPIN
     Indication: Product used for unknown indication
     Dosage: 5MG/1.5ML 1.5MLFREQUENCY 1X PER EVE, ROUTE=INJECTION
     Route: 065
  2. OMNITROPE [Suspect]
     Active Substance: SOMATROPIN
     Indication: Product used for unknown indication
     Dosage: 5MG/1.5ML 1.5MLFREQUENCY 1X PER EVE, ROUTE=INJECTION
     Route: 065
  3. OMNITROPE [Suspect]
     Active Substance: SOMATROPIN
     Indication: Product used for unknown indication
     Dosage: 5MG/1.5ML 1.5MLFREQUENCY 1X PER EVE, ROUTE=INJECTION
     Route: 065
  4. OMNITROPE [Suspect]
     Active Substance: SOMATROPIN
     Indication: Product used for unknown indication
     Dosage: 5MG/1.5ML 1.5MLFREQUENCY 1X PER EVE, ROUTE=INJECTION
     Route: 065
  5. OMNITROPE [Suspect]
     Active Substance: SOMATROPIN
     Route: 065
  6. OMNITROPE [Suspect]
     Active Substance: SOMATROPIN
     Route: 065
  7. OMNITROPE [Suspect]
     Active Substance: SOMATROPIN
     Route: 065
  8. OMNITROPE [Suspect]
     Active Substance: SOMATROPIN
     Route: 065

REACTIONS (3)
  - Incorrect dose administered [Unknown]
  - Needle issue [Unknown]
  - Product use issue [Unknown]
